FAERS Safety Report 8153561-3 (Version None)
Quarter: 2012Q1

REPORT INFORMATION
  Report Type: 
  Country: None (occurrence: None)
  Receive Date: 20120221
  Receipt Date: 20120210
  Transmission Date: 20120608
  Serious: No
  Sender: FDA-Public Use
  Company Number: US-B.I. PHARMACEUTICALS,INC./RIDGEFIELD-2012-BP-02795BP

PATIENT
  Age: 73 Year
  Sex: Female

DRUGS (2)
  1. STEROIDS [Suspect]
     Indication: LUNG INFECTION
  2. SPIRIVA [Suspect]
     Indication: PROPHYLAXIS
     Dates: start: 20080101

REACTIONS (2)
  - LUNG INFECTION [None]
  - ADVERSE DRUG REACTION [None]
